FAERS Safety Report 4530197-4 (Version None)
Quarter: 2004Q4

REPORT INFORMATION
  Report Type: 
  Country: None (occurrence: None)
  Receive Date: 20041217
  Receipt Date: 20041208
  Transmission Date: 20050328
  Serious: Yes (Hospitalization)
  Sender: FDA-Public Use
  Company Number: 200414632FR

PATIENT
  Age: 80 Year
  Sex: Female

DRUGS (3)
  1. KETEK [Suspect]
     Indication: BRONCHITIS CHRONIC
     Route: 048
     Dates: start: 20041023, end: 20041027
  2. PREVISCAN [Concomitant]
     Indication: COR PULMONALE CHRONIC
     Route: 048
     Dates: end: 20041028
  3. PREVISCAN [Concomitant]
     Indication: PULMONARY EMBOLISM
     Route: 048
     Dates: end: 20041028

REACTIONS (5)
  - DRUG INTERACTION [None]
  - DUODENITIS [None]
  - HAEMORRHAGE [None]
  - INTERNATIONAL NORMALISED RATIO INCREASED [None]
  - MICROCYTIC ANAEMIA [None]
